FAERS Safety Report 6554445-4 (Version None)
Quarter: 2010Q1

REPORT INFORMATION
  Report Type: 
  Country: None (occurrence: None)
  Receive Date: 20100127
  Receipt Date: 20100117
  Transmission Date: 20100710
  Serious: Yes (Other)
  Sender: FDA-Public Use
  Company Number: US-JNJCH-2010001558

PATIENT
  Age: 21 Month
  Sex: Female

DRUGS (1)
  1. CHILDREN'S SUDAFED PE COLD + COUGH [Suspect]
     Indication: BRONCHITIS
     Dosage: TEXT:UNKNOWN
     Route: 048

REACTIONS (4)
  - DIARRHOEA [None]
  - GASTROENTERITIS VIRAL [None]
  - VOMITING [None]
  - WRONG DRUG ADMINISTERED [None]
